FAERS Safety Report 16273966 (Version 2)
Quarter: 2019Q2

REPORT INFORMATION
  Report Type: Spontaneous
  Country: EE (occurrence: EE)
  Receive Date: 20190506
  Receipt Date: 20190612
  Transmission Date: 20190711
  Serious: Yes (Other)
  Sender: FDA-Public Use
  Company Number: EE-ABBVIE-19K-221-2768844-00

PATIENT

DRUGS (1)
  1. MAVIRET [Suspect]
     Active Substance: GLECAPREVIR\PIBRENTASVIR
     Indication: CHRONIC HEPATITIS C
     Dosage: FORM STRENGTH: GLEKAPREVIIR 100MG/ PIBRENTASVIIR 40 MG
     Route: 048
     Dates: start: 20190402

REACTIONS (2)
  - Blindness [Unknown]
  - Eye disorder [Unknown]
